FAERS Safety Report 5347717-2 (Version None)
Quarter: 2007Q2

REPORT INFORMATION
  Report Type: 
  Country: None (occurrence: None)
  Receive Date: 20070606
  Receipt Date: 20070601
  Transmission Date: 20071010
  Serious: Yes (Death, Other)
  Sender: FDA-Public Use
  Company Number: JP-AVENTIS-200610485JP

PATIENT
  Age: 61 Year
  Sex: Male
  Weight: 57 kg

DRUGS (10)
  1. RILUTEK [Suspect]
     Indication: AMYOTROPHIC LATERAL SCLEROSIS
     Route: 048
     Dates: start: 20040820, end: 20050105
  2. RILUTEK [Suspect]
     Dosage: ROUTE: GASTROSTOMY TUBE
     Route: 050
     Dates: start: 20050106, end: 20050126
  3. SELOKEN                            /00376902/ [Concomitant]
     Dosage: DOSE: 1 TABLE/DAY
     Route: 048
     Dates: start: 20040625, end: 20050105
  4. SELOKEN                            /00376902/ [Concomitant]
     Dosage: DOSE: 1 TABLET/DAY; ROUTE: GASTROSTOMY TUBE
     Route: 050
     Dates: start: 20050106, end: 20050126
  5. ALLOPURINOL [Concomitant]
     Indication: HYPERURICAEMIA
     Dosage: DOSE: 1 TABLET/DAY
     Route: 048
     Dates: end: 20050105
  6. ALLOPURINOL [Concomitant]
     Dosage: DOSE: 1 TABLET/DAY; ROUTE: GASTROSTOMY TUBE
     Route: 050
     Dates: start: 20050106, end: 20050126
  7. ALLOPURINOL [Concomitant]
     Dosage: DOSE: 1 TABLET/DAY
     Route: 048
     Dates: end: 20050105
  8. ALLOPURINOL [Concomitant]
     Dosage: DOSE: 1 TABLET/DAY; ROUTE: GASTROSTOMY TUBE
     Route: 050
     Dates: start: 20050106, end: 20050126
  9. GLIMICRON [Concomitant]
     Indication: DIABETES MELLITUS
     Dosage: DOSE: 4 TABLETS/DAY
     Route: 048
     Dates: end: 20050105
  10. GLIMICRON [Concomitant]
     Dosage: DOSE: 4 TABLETS/DAY; ROUTE: GASTROSTOMY TUBE
     Route: 050
     Dates: start: 20050106, end: 20050126

REACTIONS (5)
  - ALANINE AMINOTRANSFERASE INCREASED [None]
  - ASPARTATE AMINOTRANSFERASE INCREASED [None]
  - DEATH [None]
  - GAMMA-GLUTAMYLTRANSFERASE INCREASED [None]
  - PNEUMONIA ASPIRATION [None]
